FAERS Safety Report 12933120 (Version 1)
Quarter: 2016Q4

REPORT INFORMATION
  Report Type: Spontaneous
  Country: GB (occurrence: GB)
  Receive Date: 20161111
  Receipt Date: 20161111
  Transmission Date: 20170207
  Serious: Yes (Death, Other)
  Sender: FDA-Public Use
  Company Number: GB-PFIZER INC-2014357311

PATIENT
  Age: 31 Year
  Sex: Male
  Weight: 91 kg

DRUGS (24)
  1. ZAPONEX [Suspect]
     Active Substance: CLOZAPINE
     Dosage: UNK, AS NEEDED
     Route: 048
     Dates: start: 20110317, end: 201111
  2. METFORMIN [Concomitant]
     Active Substance: METFORMIN HYDROCHLORIDE
     Dosage: UNK
  3. SENNA ALEXANDRINA [Concomitant]
     Active Substance: SENNA LEAF
     Dosage: UNK
  4. CYANOCOBALAMIN. [Concomitant]
     Active Substance: CYANOCOBALAMIN
     Dosage: UNK
  5. ZAPONEX [Suspect]
     Active Substance: CLOZAPINE
     Dosage: UNK, AS NEEDED
     Route: 048
     Dates: start: 20061113, end: 200705
  6. ZAPONEX [Suspect]
     Active Substance: CLOZAPINE
     Dosage: UNK, AS NEEDED
     Route: 048
     Dates: start: 20071217, end: 20080227
  7. ZAPONEX [Suspect]
     Active Substance: CLOZAPINE
     Dosage: UNK, AS NEEDED
     Route: 048
     Dates: start: 20080529, end: 200912
  8. CARBAZOCHROME [Concomitant]
     Active Substance: CARBAZOCHROME
     Dosage: UNK
  9. ZAPONEX [Suspect]
     Active Substance: CLOZAPINE
     Dosage: UNK
     Route: 048
     Dates: start: 20140404, end: 20140816
  10. ORLISTAT [Concomitant]
     Active Substance: ORLISTAT
     Dosage: UNK
  11. ZAPONEX [Suspect]
     Active Substance: CLOZAPINE
     Dosage: UNK, AS NEEDED
     Route: 048
     Dates: start: 20071106, end: 200711
  12. ZAPONEX [Suspect]
     Active Substance: CLOZAPINE
     Dosage: UNK, AS NEEDED
     Route: 048
     Dates: start: 20070607, end: 20071101
  13. DOCUSATE SODIUM. [Concomitant]
     Active Substance: DOCUSATE SODIUM
     Dosage: UNK
  14. MULTIVITAMINS [Concomitant]
     Active Substance: VITAMINS
     Dosage: UNK
  15. PYRIDOXINE HYDROCHLORIDE. [Concomitant]
     Active Substance: PYRIDOXINE HYDROCHLORIDE
     Dosage: UNK
  16. TOCOPHERYL ACETATE [Concomitant]
     Active Substance: .ALPHA.-TOCOPHEROL ACETATE
     Dosage: UNK
  17. ABILIFY [Suspect]
     Active Substance: ARIPIPRAZOLE
     Dosage: UNK
  18. ADCAL [Concomitant]
     Active Substance: CALCIUM CARBONATE
     Dosage: UNK
  19. LACTULOSE. [Concomitant]
     Active Substance: LACTULOSE
     Dosage: UNK
  20. CALCIUM PANTOTHENATE [Concomitant]
     Active Substance: CALCIUM PANTOTHENATE
     Dosage: UNK
  21. LORAZEPAM. [Suspect]
     Active Substance: LORAZEPAM
     Dosage: UNK, AS NEEDED
  22. SUBUTEX [Suspect]
     Active Substance: BUPRENORPHINE HYDROCHLORIDE
     Dosage: UNK
  23. ZAPONEX [Suspect]
     Active Substance: CLOZAPINE
     Dosage: UNK, AS NEEDED
     Route: 048
     Dates: start: 20100105, end: 20100402
  24. DEPAKOTE [Concomitant]
     Active Substance: DIVALPROEX SODIUM
     Dosage: UNK

REACTIONS (5)
  - Sleep apnoea syndrome [Fatal]
  - Hepatic steatosis [Not Recovered/Not Resolved]
  - Cardiomyopathy [Not Recovered/Not Resolved]
  - Toxicity to various agents [Fatal]
  - Hepatic congestion [Not Recovered/Not Resolved]
